FAERS Safety Report 7652341-2 (Version None)
Quarter: 2011Q3

REPORT INFORMATION
  Report Type: 
  Country: None (occurrence: None)
  Receive Date: 20110803
  Receipt Date: 20110725
  Transmission Date: 20111222
  Serious: Yes (Hospitalization)
  Sender: FDA-Public Use
  Company Number: US-US-EMD SERONO, INC.-7073245

PATIENT
  Sex: Female

DRUGS (2)
  1. NAPROXEN [Concomitant]
     Indication: PREMEDICATION
     Dates: end: 20110701
  2. REBIF [Suspect]
     Indication: PRODUCT USED FOR UNKNOWN INDICATION
     Route: 058
     Dates: start: 20030730

REACTIONS (4)
  - PYREXIA [None]
  - FALL [None]
  - ARTHRALGIA [None]
  - CHILLS [None]
